FAERS Safety Report 8604225 (Version 2)
Quarter: 2013Q2

REPORT INFORMATION
  Report Type: Spontaneous
  Country: IT (occurrence: IT)
  Receive Date: 20120608
  Receipt Date: 20130502
  Transmission Date: 20140414
  Serious: Yes (Other)
  Sender: FDA-Public Use
  Company Number: IT-AMGEN-ITASP2012034419

PATIENT
  Age: 43 Year
  Sex: Female

DRUGS (7)
  1. ENBREL [Suspect]
     Indication: RHEUMATOID ARTHRITIS
     Dosage: 50 MG, WEEKLY
     Route: 058
     Dates: start: 20080502, end: 20120503
  2. MEDROL                             /00049601/ [Concomitant]
     Dosage: UNK
  3. DEPAKIN [Concomitant]
     Dosage: UNK
  4. ENTACT [Concomitant]
     Dosage: UNK
  5. XANAX [Concomitant]
     Dosage: UNK
  6. DIFIX [Concomitant]
     Dosage: UNK
  7. LIOTIR [Concomitant]
     Dosage: UNK

REACTIONS (1)
  - Thyroid cancer [Not Recovered/Not Resolved]
